FAERS Safety Report 19721846 (Version 1)
Quarter: 2021Q3

REPORT INFORMATION
  Report Type: Spontaneous
  Country: IN (occurrence: IN)
  Receive Date: 20210818
  Receipt Date: 20210818
  Transmission Date: 20211014
  Serious: Yes (Other)
  Sender: FDA-Public Use
  Company Number: IN-VIWITPHARMA-2021VWTLIT00040

PATIENT
  Age: 43 Year
  Sex: Female

DRUGS (2)
  1. ATROPINE. [Interacting]
     Active Substance: ATROPINE
     Indication: IRIDOCYCLITIS
     Route: 061
  2. TOPIRAMATE. [Suspect]
     Active Substance: TOPIRAMATE
     Indication: MIGRAINE
     Dosage: 100 MG DAILY
     Route: 048

REACTIONS (10)
  - Uveitis [Recovered/Resolved]
  - Ocular hyperaemia [Recovered/Resolved]
  - Visual impairment [Recovered/Resolved]
  - Eye inflammation [Recovered/Resolved]
  - Choroidal detachment [Recovered/Resolved]
  - Eye pain [Recovered/Resolved]
  - Hypopyon [Recovered/Resolved]
  - Flat anterior chamber of eye [Recovered/Resolved]
  - Corneal oedema [Recovered/Resolved]
  - Anterior chamber flare [Recovered/Resolved]
